FAERS Safety Report 18537648 (Version 2)
Quarter: 2020Q4

REPORT INFORMATION
  Report Type: Spontaneous
  Country: US (occurrence: US)
  Receive Date: 20201123
  Receipt Date: 20201208
  Transmission Date: 20210114
  Serious: No
  Sender: FDA-Public Use
  Company Number: US-BEH-2020125124

PATIENT
  Age: 28 Year
  Sex: Female

DRUGS (2)
  1. BERINERT [Suspect]
     Active Substance: HUMAN C1-ESTERASE INHIBITOR
     Dosage: 2500 UNSPECIFIED UNITS, PRN
     Route: 042
     Dates: start: 2019, end: 2020
  2. BERINERT [Suspect]
     Active Substance: HUMAN C1-ESTERASE INHIBITOR
     Dosage: 2500 UNSPECIFIED UNITS, PRN
     Route: 042
     Dates: start: 2019, end: 2020

REACTIONS (5)
  - Injection site erythema [Unknown]
  - Urticaria [Unknown]
  - Burning sensation [Unknown]
  - Hypersensitivity [Unknown]
  - Injection site vesicles [Unknown]

NARRATIVE: CASE EVENT DATE: 20201117
